FAERS Safety Report 13842464 (Version 1)
Quarter: 2017Q3

REPORT INFORMATION
  Report Type: Spontaneous
  Country: US (occurrence: US)
  Receive Date: 20170807
  Receipt Date: 20170807
  Transmission Date: 20171127
  Serious: Yes (Disabling)
  Sender: FDA-Public Use
  Company Number: None

PATIENT
  Age: 50 Year
  Sex: Female
  Weight: .45 kg

DRUGS (1)
  1. MYRBETRIQ [Suspect]
     Active Substance: MIRABEGRON
     Indication: MICTURITION URGENCY
     Dates: start: 20170501, end: 20170803

REACTIONS (4)
  - Back pain [None]
  - Arthralgia [None]
  - Paralysis [None]
  - Feeling abnormal [None]

NARRATIVE: CASE EVENT DATE: 20170701
